FAERS Safety Report 5771988-1 (Version None)
Quarter: 2008Q2

REPORT INFORMATION
  Report Type: 
  Country: None (occurrence: None)
  Receive Date: 20080612
  Receipt Date: 20080612
  Transmission Date: 20081010
  Serious: No
  Sender: FDA-Public Use
  Company Number: None

PATIENT
  Age: 21 Year
  Sex: Male
  Weight: 92.9874 kg

DRUGS (2)
  1. PAROXETINE HCL EXTENDED RELEASE [Suspect]
     Indication: DEPRESSION
     Dosage: 25MG PER DAY
     Dates: start: 20080602, end: 20080610
  2. PAROXETINE HCL EXTENDED RELEASE [Suspect]
     Indication: SOCIAL PHOBIA
     Dosage: 25MG PER DAY
     Dates: start: 20080602, end: 20080610

REACTIONS (3)
  - ABDOMINAL PAIN UPPER [None]
  - FEELING ABNORMAL [None]
  - PHARMACEUTICAL PRODUCT COMPLAINT [None]
